FAERS Safety Report 5206328-X (Version None)
Quarter: 2007Q1

REPORT INFORMATION
  Report Type: 
  Country: None (occurrence: None)
  Receive Date: 20070111
  Receipt Date: 20070103
  Transmission Date: 20070707
  Serious: Yes (Hospitalization)
  Sender: FDA-Public Use
  Company Number: US-PFIZER INC-2006137209

PATIENT
  Sex: Male
  Weight: 86.2 kg

DRUGS (4)
  1. BEXTRA [Suspect]
     Indication: SKELETAL INJURY
  2. ASPIRIN [Concomitant]
  3. LEXAPRO [Concomitant]
  4. VERAPAMIL [Concomitant]

REACTIONS (4)
  - DUODENAL ULCER [None]
  - GASTRIC ULCER [None]
  - OESOPHAGEAL CANDIDIASIS [None]
  - SMALL INTESTINE ULCER [None]
